FAERS Safety Report 6511408-2 (Version None)
Quarter: 2009Q4

REPORT INFORMATION
  Report Type: 
  Country: None (occurrence: None)
  Receive Date: 20091222
  Receipt Date: 20090312
  Transmission Date: 20100525
  Serious: No
  Sender: FDA-Public Use
  Company Number: US-ASTRAZENECA-2009UW06486

PATIENT
  Age: 63 Year
  Sex: Female
  Weight: 90.7 kg

DRUGS (5)
  1. CRESTOR [Suspect]
     Route: 048
     Dates: start: 20090310
  2. TRIAVAL [Concomitant]
     Indication: ANTIDEPRESSANT THERAPY
  3. LUNESTA [Concomitant]
     Indication: SLEEP DISORDER
  4. TOPROL-XL [Concomitant]
     Indication: HYPERTENSION
  5. CELEBREX [Concomitant]
     Indication: ARTHRITIS

REACTIONS (1)
  - INSOMNIA [None]
